FAERS Safety Report 7361153-9 (Version None)
Quarter: 2011Q1

REPORT INFORMATION
  Report Type: 
  Country: None (occurrence: None)
  Receive Date: 20110318
  Receipt Date: 20110314
  Transmission Date: 20110831
  Serious: Yes (Hospitalization, Other)
  Sender: FDA-Public Use
  Company Number: DE-ELI_LILLY_AND_COMPANY-DE201103004308

PATIENT
  Sex: Male
  Weight: 80 kg

DRUGS (13)
  1. URAPIDIL [Concomitant]
     Dosage: 90 MG, 2/D
  2. AMIODARONE HCL [Concomitant]
     Dosage: 200 MG, 2/D
  3. OLMESARTAN [Concomitant]
     Dosage: 10 MG, 1/2 PER DAY
  4. VITAMIN D [Concomitant]
     Dosage: 1 D/F, DAILY (1/D)
  5. EFFIENT [Suspect]
     Indication: RENAL ARTERY STENT PLACEMENT
     Route: 048
     Dates: start: 20100401, end: 20100505
  6. ASPIRIN [Concomitant]
     Dosage: 100 MG, DAILY (1/D)
  7. COLECALCIFEROL [Concomitant]
     Dosage: 1 D/F, DAILY (1/D)
  8. ALLOPURINOL [Concomitant]
     Dosage: 100 MG, DAILY (1/D)
  9. SIMVASTATIN [Concomitant]
     Dosage: 40 MG, DAILY (1/D)
  10. REPAGLINIDE [Concomitant]
     Dosage: 2 MG, 3/D
  11. TORASEMID [Concomitant]
     Dosage: 10 MG, DAILY (1/D)
  12. FAMOTIDIN [Concomitant]
     Dosage: 20 MG, 2/D
  13. VERAPAMIL [Concomitant]
     Dosage: 80 MG, 3/D

REACTIONS (8)
  - NORMOCHROMIC NORMOCYTIC ANAEMIA [None]
  - DIARRHOEA HAEMORRHAGIC [None]
  - TACHYARRHYTHMIA [None]
  - GASTRIC ULCER [None]
  - ANAL HAEMORRHAGE [None]
  - ATRIAL FIBRILLATION [None]
  - DIVERTICULITIS [None]
  - RENAL FAILURE ACUTE [None]
